FAERS Safety Report 13050898 (Version 1)
Quarter: 2016Q4

REPORT INFORMATION
  Report Type: Spontaneous
  Country: US (occurrence: US)
  Receive Date: 20161221
  Receipt Date: 20161221
  Transmission Date: 20170207
  Serious: No
  Sender: FDA-Public Use
  Company Number: US-ENDO PHARMACEUTICALS INC.-2016-002624

PATIENT
  Age: 67 Year
  Sex: Male
  Weight: 113.5 kg

DRUGS (5)
  1. OPANA ER [Suspect]
     Active Substance: OXYMORPHONE HYDROCHLORIDE
     Indication: BACK PAIN
     Route: 065
     Dates: start: 20150704, end: 20160316
  2. OPANA ER [Suspect]
     Active Substance: OXYMORPHONE HYDROCHLORIDE
     Indication: PAIN IN EXTREMITY
     Route: 065
     Dates: start: 201506, end: 201507
  3. EPZICOM [Concomitant]
     Active Substance: ABACAVIR SULFATE\LAMIVUDINE
     Indication: HIV TEST POSITIVE
     Route: 065
  4. TRIUMEQ [Concomitant]
     Active Substance: ABACAVIR SULFATE\DOLUTEGRAVIR SODIUM\LAMIVUDINE
     Indication: HIV TEST POSITIVE
     Route: 048
     Dates: start: 201511
  5. SUSTIVA [Concomitant]
     Active Substance: EFAVIRENZ
     Indication: HIV TEST POSITIVE
     Route: 065

REACTIONS (7)
  - Dementia [Unknown]
  - Pain [Recovered/Resolved]
  - Mental disorder [Unknown]
  - Intentional product misuse [Recovered/Resolved]
  - Hypersomnia [Recovered/Resolved]
  - Inappropriate schedule of drug administration [Recovered/Resolved]
  - Depressed mood [Unknown]

NARRATIVE: CASE EVENT DATE: 2015
